FAERS Safety Report 8574513-5 (Version None)
Quarter: 2012Q3

REPORT INFORMATION
  Report Type: 
  Country: None (occurrence: None)
  Receive Date: 20120806
  Receipt Date: 20120801
  Transmission Date: 20120928
  Serious: Yes (Hospitalization)
  Sender: FDA-Public Use
  Company Number: US-TEVA-351804USA

PATIENT
  Sex: Male

DRUGS (1)
  1. CLOZAPINE [Suspect]
     Indication: SCHIZOAFFECTIVE DISORDER
     Route: 048

REACTIONS (6)
  - FALL [None]
  - DROOLING [None]
  - DIARRHOEA [None]
  - PSYCHIATRIC DECOMPENSATION [None]
  - SPEECH DISORDER [None]
  - GAIT DISTURBANCE [None]
